FAERS Safety Report 6470725-5 (Version None)
Quarter: 2009Q4

REPORT INFORMATION
  Report Type: 
  Country: None (occurrence: None)
  Receive Date: 20091203
  Receipt Date: 20091125
  Transmission Date: 20100525
  Serious: Yes (Death, Hospitalization)
  Sender: FDA-Public Use
  Company Number: A0832902A

PATIENT
  Sex: Male

DRUGS (1)
  1. COREG [Suspect]
     Indication: DRUG USE FOR UNKNOWN INDICATION
     Route: 065

REACTIONS (11)
  - AMNESIA [None]
  - APALLIC SYNDROME [None]
  - BALANCE DISORDER [None]
  - CONFUSIONAL STATE [None]
  - DEATH [None]
  - DEPRESSION [None]
  - FALL [None]
  - PARALYSIS [None]
  - REHABILITATION THERAPY [None]
  - SUBDURAL HAEMATOMA [None]
  - WEIGHT DECREASED [None]
